FAERS Safety Report 15633904 (Version 1)
Quarter: 2018Q4

REPORT INFORMATION
  Report Type: Spontaneous
  Country: JP (occurrence: JP)
  Receive Date: 20181119
  Receipt Date: 20181119
  Transmission Date: 20190205
  Serious: Yes (Other)
  Sender: FDA-Public Use
  Company Number: JP-PFIZER INC-2018466791

PATIENT
  Age: 67 Year
  Sex: Female

DRUGS (2)
  1. HALCION [Suspect]
     Active Substance: TRIAZOLAM
     Dosage: 0.5 MG, UNK
     Route: 048
  2. HALCION [Suspect]
     Active Substance: TRIAZOLAM
     Indication: INSOMNIA
     Dosage: 0.25 MG, UNK
     Route: 048

REACTIONS (5)
  - Diabetes mellitus [Unknown]
  - Visual impairment [Unknown]
  - Feeling abnormal [Unknown]
  - Eye haemorrhage [Unknown]
  - Urinary incontinence [Unknown]
